FAERS Safety Report 6840745-7 (Version None)
Quarter: 2010Q3

REPORT INFORMATION
  Report Type: 
  Country: None (occurrence: None)
  Receive Date: 20100714
  Receipt Date: 20100702
  Transmission Date: 20110219
  Serious: Yes (Other)
  Sender: FDA-Public Use
  Company Number: DE-PFIZER INC-2010063200

PATIENT
  Age: 37 Year
  Sex: Female

DRUGS (2)
  1. LYRICA [Suspect]
     Indication: GENERALISED ANXIETY DISORDER
     Dosage: 25 MG DAILY
     Route: 048
     Dates: start: 20090617
  2. LYRICA [Suspect]
     Dosage: 25 MG, 3X/DAY
     Route: 048
     Dates: end: 20100520

REACTIONS (4)
  - SUDDEN HEARING LOSS [None]
  - TINNITUS [None]
  - VISUAL ACUITY REDUCED [None]
  - VISUAL IMPAIRMENT [None]
